FAERS Safety Report 13066396 (Version 2)
Quarter: 2017Q1

REPORT INFORMATION
  Report Type: Spontaneous
  Country: DE (occurrence: DE)
  Receive Date: 20161227
  Receipt Date: 20170130
  Transmission Date: 20170428
  Serious: Yes (Disabling)
  Sender: FDA-Public Use
  Company Number: DE-SA-2016SA230456

PATIENT
  Age: 79 Year
  Sex: Female
  Weight: 75 kg

DRUGS (6)
  1. BISOPROLOL [Concomitant]
     Active Substance: BISOPROLOL
     Dates: start: 2012
  2. L-THYROXIN [Concomitant]
     Active Substance: LEVOTHYROXINE SODIUM
     Dates: start: 2015
  3. MULTAQ [Suspect]
     Active Substance: DRONEDARONE
     Indication: ATRIAL FIBRILLATION
     Dosage: DRUG TAKEN AT 9:00 AM IN MORNING AND 18:00 IN THE EVENING
     Route: 048
     Dates: start: 20161103, end: 20161117
  4. VALSARTAN. [Concomitant]
     Active Substance: VALSARTAN
     Dates: start: 2012
  5. ELIQUIS [Concomitant]
     Active Substance: APIXABAN
     Dates: start: 2014
  6. AMIODARON [Concomitant]
     Active Substance: AMIODARONE

REACTIONS (3)
  - Visual impairment [Recovered/Resolved]
  - Headache [Recovered/Resolved]
  - Facial pain [Unknown]

NARRATIVE: CASE EVENT DATE: 20161110
